FAERS Safety Report 10855044 (Version 1)
Quarter: 2015Q1

REPORT INFORMATION
  Report Type: Spontaneous
  Country: US (occurrence: None)
  Receive Date: 20150218
  Receipt Date: 20150218
  Transmission Date: 20150721
  Serious: Yes (Disabling)
  Sender: FDA-Public Use
  Company Number: None

PATIENT
  Age: 57 Year
  Sex: Female
  Weight: 88.45 kg

DRUGS (1)
  1. BUPRENORPHINE 2 MG (NONE) [Suspect]
     Active Substance: BUPRENORPHINE
     Indication: PAIN
     Dosage: TAKEN UNDER THE TONGUE

REACTIONS (1)
  - Hyperhidrosis [None]

NARRATIVE: CASE EVENT DATE: 20130101
